FAERS Safety Report 5270065-6 (Version None)
Quarter: 2007Q1

REPORT INFORMATION
  Report Type: 
  Country: None (occurrence: None)
  Receive Date: 20070314
  Receipt Date: 20070228
  Transmission Date: 20070707
  Serious: Yes (Hospitalization, Other)
  Sender: FDA-Public Use
  Company Number: 200605IM000259

PATIENT
  Age: 67 Year
  Sex: Male
  Weight: 127.0072 kg

DRUGS (13)
  1. INTERFERON GAMMA-1B [Suspect]
     Indication: IDIOPATHIC PULMONARY FIBROSIS
     Dosage: 200 UG, TIW, SUBCUTANEOUS
     Route: 058
     Dates: start: 20040909, end: 20060428
  2. GLUCOPHAGE [Concomitant]
  3. AVANDIA [Concomitant]
  4. TOPROL-XL [Concomitant]
  5. ASPIRIN [Concomitant]
  6. NEXIUM [Concomitant]
  7. EXTRA STRENGTH TYLENOL [Concomitant]
  8. TYLENOL [Concomitant]
  9. VITAMIN CAP [Concomitant]
  10. LIPITOR [Concomitant]
  11. AMARYL [Concomitant]
  12. IBUPROFEN [Concomitant]
  13. LISINOPRIL [Concomitant]

REACTIONS (9)
  - CAROTID ARTERY STENOSIS [None]
  - CEREBRAL INFARCTION [None]
  - DRUG DOSE OMISSION [None]
  - GLOSSOPHARYNGEAL NEURALGIA [None]
  - INFLUENZA LIKE ILLNESS [None]
  - PAIN IN JAW [None]
  - TRANSIENT ISCHAEMIC ATTACK [None]
  - TREMOR [None]
  - ULCER [None]
